FAERS Safety Report 14432427 (Version 2)
Quarter: 2018Q1

REPORT INFORMATION
  Report Type: Spontaneous
  Country: CH (occurrence: CH)
  Receive Date: 20180124
  Receipt Date: 20180125
  Transmission Date: 20180509
  Serious: Yes (Hospitalization, Other)
  Sender: FDA-Public Use
  Company Number: CH-PFIZER INC-2018023226

PATIENT
  Age: 59 Year
  Sex: Female

DRUGS (24)
  1. IMOVANE [Concomitant]
     Active Substance: ZOPICLONE
     Dosage: UNK
  2. FLECTOR EP [Concomitant]
     Dosage: UNK
     Dates: start: 20171201
  3. LAXOBERON [Concomitant]
     Active Substance: SODIUM PICOSULFATE
     Dosage: UNK, AS NEEDED
     Dates: start: 20171031
  4. ONDANSETRON [Suspect]
     Active Substance: ONDANSETRON
     Dosage: UNK, AS NEEDED
     Route: 048
     Dates: end: 20170914
  5. CONDROSULF [Concomitant]
     Active Substance: SODIUM CHONDROITIN SULFATE
     Dosage: UNK
     Dates: end: 201709
  6. CLEXANE [Concomitant]
     Active Substance: ENOXAPARIN SODIUM
     Dosage: UNK
     Dates: start: 20170915, end: 20171002
  7. MYCOSTATINE [Concomitant]
     Active Substance: NYSTATIN
     Dosage: UNK
     Dates: start: 20171029, end: 20171111
  8. IMODIUM [Suspect]
     Active Substance: LOPERAMIDE HYDROCHLORIDE
     Dosage: UNK, AS NEEDED
     Route: 048
     Dates: end: 20170914
  9. CALCIMAGON D3 [Concomitant]
     Active Substance: CALCIUM\CHOLECALCIFEROL
     Dosage: UNK
  10. RISPERIDONE. [Suspect]
     Active Substance: RISPERIDONE
     Indication: SCHIZOAFFECTIVE DISORDER
     Dosage: 2.5 MG, TWICE DAILY WITH ADDITIONAL 1MG AS NEEDED
     Route: 048
     Dates: start: 201604
  11. MOTILIUM [Suspect]
     Active Substance: DOMPERIDONE
     Dosage: 10 MG, THRICE A DAY
     Route: 048
  12. IBRANCE [Suspect]
     Active Substance: PALBOCICLIB
     Indication: INVASIVE BREAST CARCINOMA
     Dosage: 125 MG, ONCE DAILY
     Route: 048
     Dates: start: 20170830
  13. ESCITALOPRAM [Suspect]
     Active Substance: ESCITALOPRAM OXALATE
     Dosage: 20 MG, ONCE DAILY
     Route: 048
     Dates: start: 201702
  14. EUTHYROX [Concomitant]
     Active Substance: LEVOTHYROXINE SODIUM
     Dosage: UNK
  15. IRFEN [Concomitant]
     Active Substance: IBUPROFEN
     Dosage: UNK, AS NEEDED
  16. TEMGESIC [Concomitant]
     Active Substance: BUPRENORPHINE HYDROCHLORIDE
     Dosage: UNK
     Dates: start: 20170920, end: 20170928
  17. ESCITALOPRAM [Suspect]
     Active Substance: ESCITALOPRAM OXALATE
     Indication: SCHIZOAFFECTIVE DISORDER
     Dosage: 10 MG, ONCE DAILY
     Route: 048
     Dates: start: 201604, end: 201702
  18. NEXIUM [Suspect]
     Active Substance: ESOMEPRAZOLE MAGNESIUM
     Indication: GASTROOESOPHAGEAL REFLUX DISEASE
     Dosage: 20 MG, ONCE DAILY
     Route: 048
  19. FASLODEX [Suspect]
     Active Substance: FULVESTRANT
     Indication: INVASIVE BREAST CARCINOMA
     Dosage: 500 MG, ONCE A MONTH
     Route: 030
     Dates: start: 201706
  20. DAFALGAN [Concomitant]
     Active Substance: ACETAMINOPHEN
     Dosage: UNK, AS NEEDED
  21. TARGIN [Concomitant]
     Active Substance: NALOXONE HYDROCHLORIDE\OXYCODONE HYDROCHLORIDE
     Dosage: UNK
     Dates: start: 20171110
  22. OXYNORM [Concomitant]
     Active Substance: OXYCODONE HYDROCHLORIDE
     Dosage: UNK, AS NEEDED
     Dates: start: 20171114
  23. MOVICOL [Concomitant]
     Active Substance: POLYETHYLENE GLYCOL 3350\POTASSIUM CHLORIDE\SODIUM BICARBONATE\SODIUM CHLORIDE
     Dosage: UNK
     Dates: start: 20171028
  24. FLECTOR EP [Concomitant]
     Active Substance: DICLOFENAC EPOLAMINE
     Dosage: UNK
     Dates: start: 20170926, end: 20171002

REACTIONS (9)
  - Craniocerebral injury [Unknown]
  - Musculoskeletal pain [Unknown]
  - Electrocardiogram QT prolonged [Not Recovered/Not Resolved]
  - Condition aggravated [Unknown]
  - Vertigo [Unknown]
  - Fall [Unknown]
  - Agranulocytosis [Recovered/Resolved]
  - Neoplasm progression [Unknown]
  - General physical health deterioration [Recovered/Resolved]

NARRATIVE: CASE EVENT DATE: 201709
